FAERS Safety Report 11889708 (Version 1)
Quarter: 2016Q1

REPORT INFORMATION
  Report Type: Spontaneous
  Country: GB (occurrence: GB)
  Receive Date: 20160105
  Receipt Date: 20160105
  Transmission Date: 20160526
  Serious: Yes (Death, Other)
  Sender: FDA-Public Use
  Company Number: GB-IPCA LABORATORIES LIMITED-IPC201512-000922

PATIENT
  Age: 25 Year
  Sex: Male
  Weight: 117 kg

DRUGS (4)
  1. ZOMORPH [Suspect]
     Active Substance: MORPHINE SULFATE
  2. TRAMADOL. [Suspect]
     Active Substance: TRAMADOL
  3. MIRTAZAPINE. [Suspect]
     Active Substance: MIRTAZAPINE
  4. ALCOHOL. [Suspect]
     Active Substance: ALCOHOL

REACTIONS (4)
  - Pneumonia [Fatal]
  - Pulmonary oedema [Unknown]
  - Left ventricular failure [Unknown]
  - Respiratory depression [Fatal]
